FAERS Safety Report 21577208 (Version 1)
Quarter: 2022Q4

REPORT INFORMATION
  Report Type: Spontaneous
  Country: FI (occurrence: None)
  Receive Date: 20221110
  Receipt Date: 20221110
  Transmission Date: 20230112
  Serious: Yes (Other)
  Sender: FDA-Public Use
  Company Number: FI-ROCHE-3214449

PATIENT
  Sex: Female

DRUGS (5)
  1. TECENTRIQ [Suspect]
     Active Substance: ATEZOLIZUMAB
     Indication: Invasive ductal breast carcinoma
     Route: 041
     Dates: end: 20210223
  2. PACLITAXEL [Suspect]
     Active Substance: PACLITAXEL
     Indication: Invasive ductal breast carcinoma
     Route: 065
     Dates: end: 20210223
  3. ENOXAPARIN [Concomitant]
     Active Substance: ENOXAPARIN
  4. PREDNISOLONE [Concomitant]
     Active Substance: PREDNISOLONE
  5. XARELTO [Concomitant]
     Active Substance: RIVAROXABAN

REACTIONS (5)
  - Rash maculo-papular [Unknown]
  - Autoimmune hepatitis [Unknown]
  - Osteoporotic fracture [Unknown]
  - Therapy partial responder [Unknown]
  - Metastases to central nervous system [Unknown]
